FAERS Safety Report 5113287-7 (Version None)
Quarter: 2006Q3

REPORT INFORMATION
  Report Type: 
  Country: None (occurrence: None)
  Receive Date: 20060920
  Receipt Date: 20060907
  Transmission Date: 20061208
  Serious: Yes (Death)
  Sender: FDA-Public Use
  Company Number: US200609001951

PATIENT
  Sex: Male

DRUGS (3)
  1. ZYPREXA [Suspect]
     Indication: AGITATION
     Dates: start: 20060101
  2. ATIVAN [Concomitant]
  3. CLOZARIL [Concomitant]

REACTIONS (1)
  - DEATH [None]
